FAERS Safety Report 9234517 (Version 1)
Quarter: 2013Q2

REPORT INFORMATION
  Report Type: Spontaneous
  Country: US (occurrence: US)
  Receive Date: 20130416
  Receipt Date: 20130416
  Transmission Date: 20140414
  Serious: No
  Sender: FDA-Public Use
  Company Number: US-BANPHARM-20120316

PATIENT
  Age: 83 Year
  Sex: Female
  Weight: 65.32 kg

DRUGS (3)
  1. ALEVE LIQUID GELS 220MG [Suspect]
     Dosage: 2DF, PRN,
     Route: 048
  2. LEVAQUIN [Concomitant]
  3. SANDOZ BRAND CHOLESTYRAMINE [Concomitant]

REACTIONS (1)
  - Ear discomfort [Recovered/Resolved]
